FAERS Safety Report 9936711 (Version 1)
Quarter: 2014Q1

REPORT INFORMATION
  Report Type: Spontaneous
  Country: US (occurrence: US)
  Receive Date: 20140228
  Receipt Date: 20140228
  Transmission Date: 20141002
  Serious: Yes (Other)
  Sender: FDA-Public Use
  Company Number: US-ASTRAZENECA-2014SE12722

PATIENT
  Age: 63 Year
  Sex: Female
  Weight: 74.8 kg

DRUGS (9)
  1. SYMBICORT [Suspect]
     Indication: SARCOIDOSIS
     Dosage: 160/4.5 MCG, 2 PUFFS BID
     Route: 055
     Dates: start: 2009
  2. NEXIUM [Suspect]
     Indication: ABDOMINAL DISCOMFORT
     Route: 048
     Dates: start: 2009
  3. NEXIUM [Suspect]
     Indication: GASTROOESOPHAGEAL REFLUX DISEASE
     Route: 048
     Dates: start: 2009
  4. NEXIUM [Suspect]
     Indication: ABDOMINAL DISCOMFORT
     Route: 048
  5. NEXIUM [Suspect]
     Indication: GASTROOESOPHAGEAL REFLUX DISEASE
     Route: 048
  6. METHOTREXATE [Concomitant]
     Indication: SARCOIDOSIS
     Dosage: 1 SHOT EVERY THURSDAY
  7. LEUCOVORIN [Concomitant]
     Dosage: NOT REPORTED WEEK, 24 HR AFTER METHOTREXATE
     Dates: start: 2013
  8. PRO AIR [Concomitant]
     Indication: INHALATION THERAPY
     Dosage: NOT REPORTED PRN
  9. CYMBALTA [Concomitant]
     Indication: MUSCLE RELAXANT THERAPY

REACTIONS (8)
  - Bronchospasm [Unknown]
  - Lip injury [Unknown]
  - Pain [Unknown]
  - Bronchitis [Unknown]
  - Neuropathy peripheral [Unknown]
  - Irritability [Unknown]
  - Off label use [Unknown]
  - Off label use [Unknown]
